FAERS Safety Report 5765065-3 (Version None)
Quarter: 2008Q2

REPORT INFORMATION
  Report Type: 
  Country: None (occurrence: None)
  Receive Date: 20080605
  Receipt Date: 20080528
  Transmission Date: 20081010
  Serious: Yes (Hospitalization, Disabling)
  Sender: FDA-Public Use
  Company Number: 163-21880-08040256

PATIENT
  Age: 57 Year
  Sex: Female

DRUGS (1)
  1. REVLIMID [Suspect]
     Indication: MULTIPLE MYELOMA
     Dosage: 25 MG, DAILY FOR 21/28 DAYS, ORAL
     Route: 048
     Dates: start: 20071101, end: 20071201

REACTIONS (4)
  - ARRHYTHMIA [None]
  - CONFUSIONAL STATE [None]
  - DEPRESSION [None]
  - MENTAL STATUS CHANGES [None]
